FAERS Safety Report 20889415 (Version 1)
Quarter: 2022Q2

REPORT INFORMATION
  Report Type: Spontaneous
  Country: GB (occurrence: None)
  Receive Date: 20220530
  Receipt Date: 20220530
  Transmission Date: 20220720
  Serious: Yes (Disabling)
  Sender: FDA-Public Use
  Company Number: None

PATIENT
  Age: 34 Year
  Sex: Female

DRUGS (3)
  1. TRASTUZUMAB [Suspect]
     Active Substance: TRASTUZUMAB
     Indication: Breast cancer metastatic
     Route: 030
     Dates: start: 20211223, end: 20211223
  2. PERTUZUMAB [Suspect]
     Active Substance: PERTUZUMAB
     Indication: Breast cancer metastatic
     Route: 030
     Dates: start: 20211223, end: 20211223
  3. LETROZOLE [Concomitant]
     Active Substance: LETROZOLE

REACTIONS (1)
  - Hemiparesis [Recovering/Resolving]

NARRATIVE: CASE EVENT DATE: 20211223
